FAERS Safety Report 21522667 (Version 2)
Quarter: 2023Q1

REPORT INFORMATION
  Report Type: Other
  Country: GB (occurrence: GB)
  Receive Date: 20221029
  Receipt Date: 20230214
  Transmission Date: 20230417
  Serious: Yes (Death, Life-Threatening)
  Sender: FDA-Public Use
  Company Number: GB-MACLEODS PHARMA EU LTD-MAC2022037955

PATIENT

DRUGS (11)
  1. DONEPEZIL [Suspect]
     Active Substance: DONEPEZIL
     Indication: Product used for unknown indication
     Dosage: 5 MILLIGRAM (FOR 4 WEEKS)
     Route: 065
  2. DONEPEZIL [Suspect]
     Active Substance: DONEPEZIL
     Dosage: 10 MILLIGRAM
     Route: 065
  3. COCODAMOL [Concomitant]
     Active Substance: ACETAMINOPHEN\CODEINE PHOSPHATE
     Indication: Product used for unknown indication
     Dosage: 2 DOSAGE FORM, QID (30MG/500MG)
     Route: 065
     Dates: start: 20220705
  4. MELATONIN [Concomitant]
     Active Substance: MELATONIN
     Indication: Product used for unknown indication
     Dosage: 2 MILLIGRAM, QD (AT NIGHT)
     Route: 065
     Dates: start: 20220525
  5. SENNA [Concomitant]
     Active Substance: SENNA LEAF\SENNOSIDES\SENNOSIDES A AND B
     Indication: Product used for unknown indication
     Dosage: 7.5 MILLIGRAM, BID (AT NIGHT)
     Route: 065
     Dates: start: 20220630
  6. OMEPRAZOLE [Concomitant]
     Active Substance: OMEPRAZOLE
     Indication: Product used for unknown indication
     Dosage: 2 DOSAGE FORM, QD (THEN REDUCE TO ONE DAILY), GASTRO RESISTANT CAPSULE
     Route: 065
     Dates: start: 20220527
  7. TAMSULOSIN [Concomitant]
     Active Substance: TAMSULOSIN
     Indication: Product used for unknown indication
     Dosage: 400 MICROGRAM, QD
     Route: 065
     Dates: start: 20220527
  8. DOCUSATE [Concomitant]
     Active Substance: DOCUSATE
     Indication: Product used for unknown indication
     Dosage: 300 MILLIGRAM, BID
     Route: 065
     Dates: start: 20220630
  9. TRAZODONE [Concomitant]
     Active Substance: TRAZODONE HYDROCHLORIDE
     Indication: Product used for unknown indication
     Dosage: 50 MILLIGRAM, QD (AT NIGHT)
     Route: 065
     Dates: start: 20220701
  10. APIXABAN [Concomitant]
     Active Substance: APIXABAN
     Indication: Product used for unknown indication
     Dosage: 5 MILLIGRAM, BID (UNTIL 01/12/2022 THEN REVIEW)
     Route: 065
     Dates: start: 20220630
  11. SERTRALINE [Concomitant]
     Active Substance: SERTRALINE HYDROCHLORIDE
     Indication: Product used for unknown indication
     Dosage: 100 MILLIGRAM, QD
     Route: 065
     Dates: start: 20220527

REACTIONS (1)
  - Ileus paralytic [Fatal]
